FAERS Safety Report 8504925-7 (Version None)
Quarter: 2012Q3

REPORT INFORMATION
  Report Type: 
  Country: None (occurrence: None)
  Receive Date: 20120712
  Receipt Date: 20120705
  Transmission Date: 20120928
  Serious: Yes (Hospitalization)
  Sender: FDA-Public Use
  Company Number: PHHO2012GB010090

PATIENT

DRUGS (1)
  1. EXJADE [Suspect]
     Indication: BLOOD IRON INCREASED

REACTIONS (1)
  - ATRIAL FIBRILLATION [None]
